FAERS Safety Report 7159320-2 (Version None)
Quarter: 2010Q4

REPORT INFORMATION
  Report Type: 
  Country: None (occurrence: None)
  Receive Date: 20101214
  Receipt Date: 20100817
  Transmission Date: 20110411
  Serious: No
  Sender: FDA-Public Use
  Company Number: US-ASTRAZENECA-2010SE38778

PATIENT
  Age: 51 Year
  Sex: Female
  Weight: 97.5 kg

DRUGS (4)
  1. CRESTOR [Suspect]
     Route: 048
     Dates: start: 20100719
  2. ACCOLATE [Concomitant]
  3. NOVOLIN N [Concomitant]
  4. ASPIRIN [Concomitant]

REACTIONS (1)
  - BACK PAIN [None]
